FAERS Safety Report 9106200 (Version 1)
Quarter: 2013Q1

REPORT INFORMATION
  Report Type: Spontaneous
  Country: US (occurrence: US)
  Receive Date: 20130221
  Receipt Date: 20130221
  Transmission Date: 20140127
  Serious: Yes (Other)
  Sender: FDA-Public Use
  Company Number: CHPA2013US003092

PATIENT
  Age: 18 Year
  Sex: Male

DRUGS (1)
  1. VOLTAREN GEL [Suspect]
     Dosage: UNK, UNK
     Route: 061
     Dates: start: 20130213

REACTIONS (6)
  - Chills [Not Recovered/Not Resolved]
  - Diarrhoea [Not Recovered/Not Resolved]
  - Vomiting [Not Recovered/Not Resolved]
  - Application site pain [Recovered/Resolved]
  - Accidental exposure to product [Unknown]
  - Drug administered at inappropriate site [Unknown]
